FAERS Safety Report 17924001 (Version 2)
Quarter: 2020Q3

REPORT INFORMATION
  Report Type: Spontaneous
  Country: AU (occurrence: AU)
  Receive Date: 20200622
  Receipt Date: 20200713
  Transmission Date: 20201103
  Serious: Yes (Other)
  Sender: FDA-Public Use
  Company Number: AU-AMGEN-AUSSP2020097176

PATIENT
  Age: 80 Year
  Sex: Female

DRUGS (2)
  1. PROLIA [Suspect]
     Active Substance: DENOSUMAB
     Indication: OSTEOPOROSIS
     Dosage: 60 MILLIGRAM, Q6MO
     Route: 058
     Dates: start: 20180207, end: 20191030
  2. WARFARIN [Concomitant]
     Active Substance: WARFARIN

REACTIONS (6)
  - Thoracic vertebral fracture [Unknown]
  - Fall [Unknown]
  - Pelvic fracture [Unknown]
  - Lumbar vertebral fracture [Unknown]
  - Treatment failure [Unknown]
  - Degenerative bone disease [Unknown]
